FAERS Safety Report 9520752 (Version 2)
Quarter: 2013Q4

REPORT INFORMATION
  Report Type: Spontaneous
  Country: IT (occurrence: None)
  Receive Date: 20130911
  Receipt Date: 20131001
  Transmission Date: 20140711
  Serious: Yes (Hospitalization)
  Sender: FDA-Public Use
  Company Number: 2013AP007816

PATIENT
  Age: 45 Year
  Sex: Female

DRUGS (7)
  1. ZOLPIDEM (ZOLPIDEM) [Suspect]
     Dates: start: 20130821, end: 20130821
  2. DELORAZEPAM (DELORAZEPAM) [Suspect]
     Dosage: OR_DRPSOL; TOTAL
     Route: 048
     Dates: start: 20130821, end: 20130821
  3. DEPALGOS [Suspect]
     Route: 048
     Dates: start: 20130821, end: 20130821
  4. OXYCONTIN (OXYCODONE HYDROCHLORIDE) [Suspect]
     Route: 048
     Dates: start: 20130821, end: 20130821
  5. TELMISARTAN (TELMISARTAN) [Concomitant]
  6. BISOPROLOL HEMIFUMARATE (BISOPROLOL HEMIFUMARATE) [Concomitant]
  7. OMEPRAZOLE (OMEPRAZOLE) [Concomitant]

REACTIONS (4)
  - Coma [None]
  - Drug abuse [None]
  - Intentional self-injury [None]
  - Toxicologic test abnormal [None]
